FAERS Safety Report 26078571 (Version 1)
Quarter: 2025Q4

REPORT INFORMATION
  Report Type: Spontaneous
  Country: US (occurrence: US)
  Receive Date: 20251123
  Receipt Date: 20251123
  Transmission Date: 20260118
  Serious: No
  Sender: GLAXOSMITHKLINE
  Company Number: US-GSK-US2025149741

PATIENT
  Age: 70 Year
  Sex: Female

DRUGS (1)
  1. BREO ELLIPTA [Suspect]
     Active Substance: FLUTICASONE FUROATE\VILANTEROL TRIFENATATE
     Indication: Product used for unknown indication
     Dosage: BREO ELLIPTA 100/25 MCG INH PWDR 30 DS NDPI TRD PACK X 1

REACTIONS (2)
  - Wrong technique in device usage process [Unknown]
  - Product label confusion [Unknown]

NARRATIVE: CASE EVENT DATE: 20251104
